FAERS Safety Report 24153079 (Version 3)
Quarter: 2024Q3

REPORT INFORMATION
  Report Type: Spontaneous
  Country: IL (occurrence: IL)
  Receive Date: 20240730
  Receipt Date: 20240812
  Transmission Date: 20241017
  Serious: No
  Sender: PFIZER
  Company Number: IL-PFIZER INC-PV202400097103

PATIENT
  Age: 10 Year
  Sex: Male

DRUGS (1)
  1. NGENLA [Suspect]
     Active Substance: SOMATROGON-GHLA
     Dosage: 60 MG
     Route: 058

REACTIONS (2)
  - Product dose omission issue [Unknown]
  - Product knowledge deficit [Unknown]
